FAERS Safety Report 7298552-X (Version None)
Quarter: 2011Q1

REPORT INFORMATION
  Report Type: 
  Country: None (occurrence: None)
  Receive Date: 20110214
  Receipt Date: 20110214
  Transmission Date: 20110831
  Serious: Yes (Life-Threatening, Hospitalization)
  Sender: FDA-Public Use
  Company Number: None

PATIENT
  Age: 66 Year
  Sex: Male

DRUGS (6)
  1. ATIVAN [Concomitant]
  2. AMLODIPINE [Concomitant]
  3. LISINOPRIL [Concomitant]
  4. OXYCODONE [Concomitant]
  5. AV-951 [Suspect]
     Indication: RECTAL CANCER
     Dosage: 1.0 MG QD PO
     Route: 048
     Dates: start: 20101223
  6. RAD001 EVEROLIMUS [Suspect]
     Indication: RECTAL CANCER
     Dosage: 5.0MG QD PO
     Route: 048
     Dates: start: 20101223

REACTIONS (1)
  - DUODENAL ULCER PERFORATION [None]
